FAERS Safety Report 25996948 (Version 1)
Quarter: 2025Q4

REPORT INFORMATION
  Report Type: Spontaneous
  Country: US (occurrence: None)
  Receive Date: 20251104
  Receipt Date: 20251104
  Transmission Date: 20260118
  Serious: Yes (Other)
  Sender: FDA-CTU
  Company Number: None

PATIENT
  Age: 81 Year
  Sex: Female

DRUGS (15)
  1. DAYVIGO [Suspect]
     Active Substance: LEMBOREXANT
     Indication: Insomnia
     Dosage: OTHER QUANTITY : 1 TABLET(S);?FREQUENCY : AT BEDTIME;?
     Route: 048
     Dates: start: 20251025, end: 20251101
  2. MYRBETRIQ [Concomitant]
     Active Substance: MIRABEGRON
  3. ATORVASTATIN [Concomitant]
     Active Substance: ATORVASTATIN
  4. LUNESTA [Concomitant]
     Active Substance: ESZOPICLONE
  5. APPLE CIDER VINEGAR [Concomitant]
     Active Substance: APPLE CIDER VINEGAR
  6. ZINC [Concomitant]
     Active Substance: ZINC
  7. ginko baloba [Concomitant]
  8. senior complex multivitamin [Concomitant]
  9. VITAMIN D3 [Concomitant]
     Active Substance: CHOLECALCIFEROL
  10. CHONDROITIN SULFATE (BOVINE)\GLUCOSAMINE HYDROCHLORIDE [Concomitant]
     Active Substance: CHONDROITIN SULFATE (BOVINE)\GLUCOSAMINE HYDROCHLORIDE
  11. COLLAGEN [Concomitant]
     Active Substance: COLLAGEN
  12. black cohash [Concomitant]
  13. HERBALS\TURMERIC [Concomitant]
     Active Substance: HERBALS\TURMERIC
  14. VITAMIN E [Concomitant]
     Active Substance: .ALPHA.-TOCOPHEROL
  15. VITAMIN C [Concomitant]
     Active Substance: ASCORBIC ACID

REACTIONS (3)
  - Nightmare [None]
  - Hallucination [None]
  - Skin burning sensation [None]

NARRATIVE: CASE EVENT DATE: 20251025
